FAERS Safety Report 7554083-0 (Version None)
Quarter: 2011Q2

REPORT INFORMATION
  Report Type: 
  Country: None (occurrence: None)
  Receive Date: 20110614
  Receipt Date: 20110614
  Transmission Date: 20111010
  Serious: No
  Sender: FDA-Public Use
  Company Number: None

PATIENT
  Age: 44 Year
  Sex: Female
  Weight: 51.7101 kg

DRUGS (1)
  1. AVELOX [Suspect]
     Dosage: 1 TAB DAILY PO
     Route: 048
     Dates: start: 20110607, end: 20110608

REACTIONS (1)
  - URTICARIA [None]
